FAERS Safety Report 25091221 (Version 1)
Quarter: 2025Q1

REPORT INFORMATION
  Report Type: Spontaneous
  Country: US (occurrence: US)
  Receive Date: 20250318
  Receipt Date: 20250318
  Transmission Date: 20250408
  Serious: Yes (Life-Threatening, Other)
  Sender: ELI LILLY AND COMPANY
  Company Number: US-ELI_LILLY_AND_COMPANY-US202503010203

PATIENT
  Age: 29 Year
  Sex: Female

DRUGS (2)
  1. EMGALITY [Suspect]
     Active Substance: GALCANEZUMAB-GNLM
     Indication: Product used for unknown indication
     Route: 065
  2. CANNABIS SATIVA SUBSP. INDICA TOP [Suspect]
     Active Substance: CANNABIS SATIVA SUBSP. INDICA TOP
     Indication: Product used for unknown indication
     Route: 065

REACTIONS (13)
  - Cardiac arrest [Unknown]
  - Brain injury [Unknown]
  - Craniocerebral injury [Unknown]
  - Seizure [Unknown]
  - Loss of consciousness [Unknown]
  - Staphylococcal sepsis [Unknown]
  - Migraine [Unknown]
  - Concussion [Unknown]
  - Back pain [Unknown]
  - Oropharyngeal pain [Unknown]
  - Heavy menstrual bleeding [Unknown]
  - Memory impairment [Unknown]
  - Dysphonia [Unknown]
